FAERS Safety Report 16744627 (Version 1)
Quarter: 2019Q3

REPORT INFORMATION
  Report Type: Report from Study
  Country: US (occurrence: US)
  Receive Date: 20190827
  Receipt Date: 20190827
  Transmission Date: 20191005
  Serious: Yes (Hospitalization, Other)
  Sender: FDA-Public Use
  Company Number: US-AMGEN-USASL2019135096

PATIENT
  Age: 63 Year
  Sex: Female

DRUGS (1)
  1. PROLIA [Suspect]
     Active Substance: DENOSUMAB
     Indication: OSTEOPOROSIS POSTMENOPAUSAL
     Dosage: 60 MILLIGRAM
     Route: 065
     Dates: start: 201808

REACTIONS (7)
  - Gait disturbance [Unknown]
  - Tooth infection [Unknown]
  - Adverse event [Unknown]
  - Arthralgia [Unknown]
  - Upper respiratory tract infection [Recovered/Resolved]
  - Asthma [Unknown]
  - Fall [Unknown]

NARRATIVE: CASE EVENT DATE: 2018
